FAERS Safety Report 8161044-X (Version None)
Quarter: 2012Q1

REPORT INFORMATION
  Report Type: 
  Country: None (occurrence: None)
  Receive Date: 20120224
  Receipt Date: 20120215
  Transmission Date: 20120608
  Serious: Yes (Hospitalization)
  Sender: FDA-Public Use
  Company Number: US-BIOGENIDEC-2011BI048231

PATIENT
  Age: 31 Year
  Sex: Female

DRUGS (2)
  1. AVONEX [Suspect]
     Indication: MULTIPLE SCLEROSIS
     Route: 030
     Dates: start: 20020401, end: 20070607
  2. AVONEX [Suspect]
     Route: 030
     Dates: start: 20110425

REACTIONS (12)
  - CONSTIPATION [None]
  - FALL [None]
  - MUSCLE TIGHTNESS [None]
  - HEADACHE [None]
  - CLAUSTROPHOBIA [None]
  - DYSPHEMIA [None]
  - ANXIETY [None]
  - ASTHENIA [None]
  - MULTIPLE SCLEROSIS [None]
  - MULTIPLE SCLEROSIS RELAPSE [None]
  - SPEECH DISORDER [None]
  - HYPOAESTHESIA [None]
